FAERS Safety Report 6615679-3 (Version None)
Quarter: 2010Q1

REPORT INFORMATION
  Report Type: 
  Country: None (occurrence: None)
  Receive Date: 20100305
  Receipt Date: 20100224
  Transmission Date: 20100710
  Serious: Yes (Hospitalization)
  Sender: FDA-Public Use
  Company Number: US-ROCHE-687868

PATIENT
  Sex: Female

DRUGS (1)
  1. VALGANCICLOVIR HCL [Suspect]
     Indication: DRUG USE FOR UNKNOWN INDICATION
     Route: 065
     Dates: start: 20090909

REACTIONS (3)
  - BLOOD DISORDER [None]
  - HYPOTENSION [None]
  - ILL-DEFINED DISORDER [None]
